FAERS Safety Report 9037598 (Version 1)
Quarter: 2013Q1

REPORT INFORMATION
  Report Type: Report from Study
  Country: US (occurrence: US)
  Receive Date: 20130129
  Receipt Date: 20130129
  Transmission Date: 20140127
  Serious: No
  Sender: FDA-Public Use
  Company Number: US-ABBOTT-12P-163-0895673-00

PATIENT
  Age: 70 Year
  Sex: Female

DRUGS (16)
  1. HUMIRA 40 MG/0.8 ML PEN [Suspect]
     Indication: CROHN^S DISEASE
     Dates: start: 20111220
  2. METOPROLOL [Concomitant]
     Indication: CARDIAC DISORDER
  3. BABY ASPIRIN [Concomitant]
     Indication: THROMBOSIS PROPHYLAXIS
  4. CALCIUM CITRATE [Concomitant]
     Indication: OSTEOPOROSIS
  5. MULTIVITAMIN [Concomitant]
     Indication: VITAMIN SUPPLEMENTATION
  6. PEPCID [Concomitant]
     Indication: DYSPEPSIA
  7. IMODIUM [Concomitant]
     Indication: DIARRHOEA
  8. SINGULAIR [Concomitant]
     Indication: SEASONAL ALLERGY
     Dosage: AT NIGHT
  9. LATANOPROST [Concomitant]
     Indication: GLAUCOMA
     Dosage: 1 GT OU AT NIGHT
  10. TUMS [Concomitant]
     Indication: DYSPEPSIA
  11. TYLENOL [Concomitant]
     Indication: PAIN
  12. BUTALBITAL [Concomitant]
     Indication: HEADACHE
  13. PROBIOTICS OTC [Concomitant]
     Indication: CROHN^S DISEASE
  14. FLAXSEED OIL [Concomitant]
     Indication: SUPPLEMENTATION THERAPY
  15. VAGIFEM [Concomitant]
     Indication: VULVOVAGINAL DRYNESS
  16. VIT D [Concomitant]
     Indication: OSTEOPOROSIS

REACTIONS (2)
  - Injection site swelling [Not Recovered/Not Resolved]
  - Injection site erythema [Not Recovered/Not Resolved]
